FAERS Safety Report 9504889 (Version 1)
Quarter: 2013Q3

REPORT INFORMATION
  Report Type: Spontaneous
  Country: US (occurrence: US)
  Receive Date: 20130906
  Receipt Date: 20130906
  Transmission Date: 20140515
  Serious: No
  Sender: FDA-Public Use
  Company Number: US-009507513-1309USA002118

PATIENT
  Sex: Female

DRUGS (3)
  1. AZASITE [Suspect]
     Indication: EYE INFECTION
     Dosage: 1 DROP IN EACH EYE TWICE A DAY FOR TWO DAYS AND 1 DROP IN EACH EYE FOR 5 DAYS
     Route: 047
     Dates: start: 20130821
  2. TOBRADEX [Concomitant]
  3. ESTRACE [Concomitant]

REACTIONS (4)
  - Drug dose omission [Unknown]
  - Drug ineffective [Not Recovered/Not Resolved]
  - Product solubility abnormal [Unknown]
  - Photopsia [Unknown]
